FAERS Safety Report 8350915-7 (Version None)
Quarter: 2012Q2

REPORT INFORMATION
  Report Type: 
  Country: None (occurrence: None)
  Receive Date: 20120510
  Receipt Date: 20120507
  Transmission Date: 20120825
  Serious: Yes (Other)
  Sender: FDA-Public Use
  Company Number: JP-PFIZER INC-2012082364

PATIENT
  Age: 70 Year
  Sex: Female

DRUGS (2)
  1. CADUET [Suspect]
     Dosage: UNK
     Dates: start: 20111201
  2. EPADEL [Concomitant]
     Dosage: UNK

REACTIONS (3)
  - HEPATIC FUNCTION ABNORMAL [None]
  - RASH [None]
  - GAMMA-GLUTAMYLTRANSFERASE INCREASED [None]
